FAERS Safety Report 5115401-6 (Version None)
Quarter: 2006Q3

REPORT INFORMATION
  Report Type: 
  Country: None (occurrence: None)
  Receive Date: 20060922
  Receipt Date: 20060911
  Transmission Date: 20061208
  Serious: Yes (Other)
  Sender: FDA-Public Use
  Company Number: 2006111037

PATIENT
  Age: 81 Year
  Sex: Female
  Weight: 84.8226 kg

DRUGS (3)
  1. NEURONTIN [Suspect]
     Indication: PAIN
     Dosage: 900 MG (300 MG, 3 IN 1 D), ORAL
     Route: 048
     Dates: start: 20000101
  2. OXYCODONE HYDROCHLORIDE AND ACETAMINOPHEN [Concomitant]
  3. CIPRALEX (ESCITALOPRAM) [Concomitant]

REACTIONS (5)
  - BALANCE DISORDER [None]
  - MONONEUROPATHY MULTIPLEX [None]
  - SUICIDAL IDEATION [None]
  - THINKING ABNORMAL [None]
  - TREATMENT NONCOMPLIANCE [None]
